FAERS Safety Report 15619424 (Version 2)
Quarter: 2019Q1

REPORT INFORMATION
  Report Type: Report from Study
  Country: None (occurrence: BR)
  Receive Date: 20181115
  Receipt Date: 20190304
  Transmission Date: 20190417
  Serious: Yes (Other)
  Sender: FDA-Public Use
  Company Number: BR-ABBVIE-18K-020-2553275-00

PATIENT
  Age: 49 Year
  Sex: Female
  Weight: 48.58 kg

DRUGS (2)
  1. HUMIRA [Suspect]
     Active Substance: ADALIMUMAB
     Indication: PSORIATIC ARTHROPATHY
     Route: 058
     Dates: start: 201804, end: 2018
  2. HUMIRA [Suspect]
     Active Substance: ADALIMUMAB
     Route: 058

REACTIONS (17)
  - Psoriatic arthropathy [Unknown]
  - Dental restoration failure [Unknown]
  - Skin fissures [Not Recovered/Not Resolved]
  - Tendonitis [Unknown]
  - Hepatitis [Not Recovered/Not Resolved]
  - Swelling [Recovering/Resolving]
  - Gait disturbance [Recovered/Resolved]
  - Toothache [Not Recovered/Not Resolved]
  - Fall [Unknown]
  - Musculoskeletal pain [Unknown]
  - Pain in extremity [Not Recovered/Not Resolved]
  - Limb injury [Recovering/Resolving]
  - Skin hypertrophy [Not Recovered/Not Resolved]
  - Back pain [Not Recovered/Not Resolved]
  - Tendon rupture [Unknown]
  - Adverse event [Unknown]
  - Weight increased [Recovering/Resolving]

NARRATIVE: CASE EVENT DATE: 201805
